FAERS Safety Report 23112446 (Version 2)
Quarter: 2023Q4

REPORT INFORMATION
  Report Type: Report from Study
  Country: US (occurrence: US)
  Receive Date: 20231027
  Receipt Date: 20231116
  Transmission Date: 20240110
  Serious: No
  Sender: FDA-Public Use
  Company Number: US-002147023-NVSC2023US228565

PATIENT
  Sex: Male

DRUGS (1)
  1. ENTRESTO [Suspect]
     Active Substance: SACUBITRIL\VALSARTAN
     Indication: Product used for unknown indication
     Dosage: 2 TABLETS DAILY, QD
     Route: 065

REACTIONS (6)
  - Rhinorrhoea [Unknown]
  - Hypertension [Unknown]
  - Malaise [Unknown]
  - Gait disturbance [Unknown]
  - Off label use [Unknown]
  - Product odour abnormal [Unknown]
